FAERS Safety Report 20165730 (Version 1)
Quarter: 2021Q4

REPORT INFORMATION
  Report Type: Spontaneous
  Country: US (occurrence: US)
  Receive Date: 20211209
  Receipt Date: 20211209
  Transmission Date: 20220303
  Serious: Yes (Death, Other)
  Sender: FDA-Public Use
  Company Number: US-TAKEDA-2021TUS077963

PATIENT
  Age: 47 Year
  Sex: Male
  Weight: 87.982 kg

DRUGS (1)
  1. EXKIVITY [Suspect]
     Active Substance: MOBOCERTINIB
     Indication: Lung neoplasm malignant
     Dosage: 160 MILLIGRAM, QD
     Route: 048
     Dates: start: 20211126

REACTIONS (1)
  - Death [Fatal]

NARRATIVE: CASE EVENT DATE: 20211204
